FAERS Safety Report 5066066-3 (Version None)
Quarter: 2006Q3

REPORT INFORMATION
  Report Type: 
  Country: None (occurrence: None)
  Receive Date: 20060731
  Receipt Date: 20060713
  Transmission Date: 20061208
  Serious: No
  Sender: FDA-Public Use
  Company Number: US-MERCK-0607USA02591

PATIENT
  Age: 85 Year
  Sex: Male
  Weight: 88 kg

DRUGS (8)
  1. ZETIA [Suspect]
     Indication: HYPERCHOLESTEROLAEMIA
     Route: 048
     Dates: start: 20060601
  2. COUMADIN [Concomitant]
     Route: 065
     Dates: start: 20050701, end: 20060701
  3. COUMADIN [Concomitant]
     Route: 065
     Dates: start: 20060701
  4. PROSCAR [Concomitant]
     Route: 048
  5. FLOMAX [Concomitant]
     Route: 065
  6. FOSAMAX [Concomitant]
     Route: 065
  7. METOPROLOL [Concomitant]
     Route: 065
  8. LIPITOR [Concomitant]
     Route: 065

REACTIONS (2)
  - INTERNATIONAL NORMALISED RATIO INCREASED [None]
  - PROTHROMBIN LEVEL INCREASED [None]
